FAERS Safety Report 8176499-4 (Version None)
Quarter: 2012Q1

REPORT INFORMATION
  Report Type: 
  Country: None (occurrence: None)
  Receive Date: 20120301
  Receipt Date: 20120227
  Transmission Date: 20120608
  Serious: Yes (Other)
  Sender: FDA-Public Use
  Company Number: RU-PFIZER INC-2012051766

PATIENT
  Age: 25 Year
  Sex: Male

DRUGS (1)
  1. VIAGRA [Suspect]
     Indication: ERECTILE DYSFUNCTION
     Dosage: 1/4, EVERY OTHER DAY

REACTIONS (4)
  - CANDIDIASIS [None]
  - ARRHYTHMIA [None]
  - DYSPNOEA [None]
  - ERECTILE DYSFUNCTION [None]
